FAERS Safety Report 19800684 (Version 3)
Quarter: 2021Q4

REPORT INFORMATION
  Report Type: Report from Study
  Country: IL (occurrence: IL)
  Receive Date: 20210908
  Receipt Date: 20211210
  Transmission Date: 20220303
  Serious: Yes (Hospitalization)
  Sender: FDA-Public Use
  Company Number: IL-KOREA IPSEN PHARMA-2021-21552

PATIENT
  Age: 86 Year
  Sex: Male
  Weight: 80 kg

DRUGS (8)
  1. LANREOTIDE ACETATE [Suspect]
     Active Substance: LANREOTIDE ACETATE
     Indication: Pancreatic neuroendocrine tumour
     Dosage: 120 MG EVERY 28 DAYS
     Route: 058
     Dates: start: 20181209
  2. ELIQUIS [Concomitant]
     Active Substance: APIXABAN
  3. METFORMIN HYDROCHLORIDE [Concomitant]
     Active Substance: METFORMIN HYDROCHLORIDE
  4. MICRO KALIUM [Concomitant]
  5. TAMSULOSIN [Concomitant]
     Active Substance: TAMSULOSIN
  6. PREGABALIN [Concomitant]
     Active Substance: PREGABALIN
  7. FUSID [Concomitant]
  8. ATORVASTATIN CALCIUM [Concomitant]
     Active Substance: ATORVASTATIN CALCIUM

REACTIONS (1)
  - Pain in extremity [Recovered/Resolved]

NARRATIVE: CASE EVENT DATE: 20210101
